FAERS Safety Report 4750883-0 (Version None)
Quarter: 2005Q3

REPORT INFORMATION
  Report Type: 
  Country: None (occurrence: None)
  Receive Date: 20050822
  Receipt Date: 20050805
  Transmission Date: 20060218
  Serious: Yes (Other)
  Sender: FDA-Public Use
  Company Number: 8011162

PATIENT
  Age: 22 Year
  Sex: Female

DRUGS (6)
  1. KEPPRA [Suspect]
     Indication: MYOCLONIC EPILEPSY
     Dosage: PO
     Route: 048
     Dates: start: 20020101
  2. KEPPRA [Suspect]
     Indication: MYOCLONIC EPILEPSY
     Dosage: 3000 MG/ D PO
     Route: 048
  3. DEPAKOTE [Suspect]
     Indication: MYOCLONIC EPILEPSY
  4. LAMICTAL [Suspect]
     Indication: MYOCLONIC EPILEPSY
     Dosage: PO
     Route: 048
  5. LAMICTAL [Suspect]
     Indication: MYOCLONIC EPILEPSY
     Dosage: 500 G /D PO
     Route: 048
  6. BIRTH CONTROL PILLS [Concomitant]

REACTIONS (3)
  - BRADYCARDIA [None]
  - LOSS OF CONSCIOUSNESS [None]
  - SYNCOPE [None]
